FAERS Safety Report 9815701 (Version 1)
Quarter: 2014Q1

REPORT INFORMATION
  Report Type: Report from Study
  Country: US (occurrence: US)
  Receive Date: 20140114
  Receipt Date: 20140114
  Transmission Date: 20141002
  Serious: Yes (Hospitalization)
  Sender: FDA-Public Use
  Company Number: GXBR2014US000479

PATIENT
  Sex: Male

DRUGS (1)
  1. TACROLIMUS [Suspect]
     Dosage: 1 MG, BID
     Route: 048

REACTIONS (1)
  - Malaise [Unknown]
